FAERS Safety Report 12970434 (Version 1)
Quarter: 2016Q4

REPORT INFORMATION
  Report Type: Spontaneous
  Country: US (occurrence: US)
  Receive Date: 20161122
  Receipt Date: 20161122
  Transmission Date: 20170207
  Serious: No
  Sender: FDA-Public Use
  Company Number: None

PATIENT
  Sex: Female

DRUGS (2)
  1. AFINITOR [Suspect]
     Active Substance: EVEROLIMUS
     Indication: BREAST CANCER FEMALE
     Dosage: 1 TABLET DAILY PO
     Route: 048
     Dates: start: 20160818
  2. ONDANSETRON 8 MG GLENMARK PHARMACEUTICALS [Suspect]
     Active Substance: ONDANSETRON
     Indication: BREAST CANCER FEMALE
     Dosage: 1 TABLET Q8H PO
     Route: 048
     Dates: start: 20160818

REACTIONS (1)
  - Cystitis [None]
